FAERS Safety Report 17071645 (Version 2)
Quarter: 2019Q4

REPORT INFORMATION
  Report Type: Spontaneous
  Country: FR (occurrence: FR)
  Receive Date: 20191125
  Receipt Date: 20191206
  Transmission Date: 20200122
  Serious: Yes (Other)
  Sender: FDA-Public Use
  Company Number: FR-MYLANLABS-2019M1112858

PATIENT
  Age: 24 Year
  Sex: Female
  Weight: 43 kg

DRUGS (19)
  1. CINACALCET HYDROCHLORIDE. [Suspect]
     Active Substance: CINACALCET HYDROCHLORIDE
     Dosage: 90 MILLIGRAM, QD
     Dates: start: 20060915, end: 20061205
  2. ALFACALCIDOL [Concomitant]
     Active Substance: ALFACALCIDOL
     Indication: HYPERPARATHYROIDISM SECONDARY
     Dosage: 1 MICROGRAM, QD (0.25 UNK, QD)
     Dates: start: 20050615, end: 200707
  3. CALCIUM CARBONATE. [Concomitant]
     Active Substance: CALCIUM CARBONATE
     Dosage: 1.5 GRAM, QD
     Dates: start: 20050615, end: 20070523
  4. CINACALCET HYDROCHLORIDE. [Suspect]
     Active Substance: CINACALCET HYDROCHLORIDE
     Dosage: 120 MILLIGRAM, QD
     Dates: start: 20061206, end: 20070523
  5. CALCIUM CARBONATE. [Concomitant]
     Active Substance: CALCIUM CARBONATE
     Indication: HYPOPHOSPHATAEMIA
     Dosage: 4.5 GRAM, QD
     Dates: start: 200707, end: 20071205
  6. SEVELAMER [Concomitant]
     Active Substance: SEVELAMER
     Indication: HYPOPHOSPHATAEMIA
     Dosage: 2400 MILLIGRAM, QD
     Dates: start: 200707, end: 20071206
  7. CINACALCET HYDROCHLORIDE. [Suspect]
     Active Substance: CINACALCET HYDROCHLORIDE
     Indication: HYPERPARATHYROIDISM SECONDARY
     Dosage: 30 MILLIGRAM, QD
     Dates: start: 20060307, end: 20060609
  8. CINACALCET HYDROCHLORIDE. [Suspect]
     Active Substance: CINACALCET HYDROCHLORIDE
     Dosage: 60 MILLIGRAM, QD
     Dates: start: 20060610, end: 20060914
  9. ALFACALCIDOL [Concomitant]
     Active Substance: ALFACALCIDOL
     Dosage: 4 MICROGRAM, QD
     Dates: start: 20071206, end: 201803
  10. SEVELAMER [Concomitant]
     Active Substance: SEVELAMER
     Dosage: 7200 MILLIGRAM, QD
     Dates: start: 20060610, end: 20070524
  11. CALCIUM CARBONATE. [Concomitant]
     Active Substance: CALCIUM CARBONATE
     Dosage: 2 GRAM, QD
     Dates: start: 201803
  12. CALCIUM CARBONATE. [Concomitant]
     Active Substance: CALCIUM CARBONATE
     Dosage: 12 GRAM, QD
     Route: 042
     Dates: start: 2007
  13. ALFACALCIDOL [Concomitant]
     Active Substance: ALFACALCIDOL
     Dosage: 6 MICROGRAM, QD
     Dates: start: 200707, end: 20071205
  14. CINACALCET HYDROCHLORIDE. [Suspect]
     Active Substance: CINACALCET HYDROCHLORIDE
     Dosage: 150 MILLIGRAM, QD
     Dates: start: 20070524, end: 200707
  15. CALCIUM CARBONATE. [Concomitant]
     Active Substance: CALCIUM CARBONATE
     Dosage: 12 GRAM, QD
     Route: 042
     Dates: start: 20070524, end: 200707
  16. CALCIUM CARBONATE. [Concomitant]
     Active Substance: CALCIUM CARBONATE
     Dosage: 4.5 GRAM, QD
     Dates: start: 20071206
  17. SEVELAMER [Concomitant]
     Active Substance: SEVELAMER
     Dosage: 3200 MILLIGRAM, QD
     Dates: start: 20051207, end: 20070713
  18. ALFACALCIDOL [Concomitant]
     Active Substance: ALFACALCIDOL
     Dosage: 2 MICROGRAM, QD
     Dates: start: 201803
  19. SEVELAMER [Concomitant]
     Active Substance: SEVELAMER
     Dosage: 4800 MILLIGRAM, QD
     Dates: start: 20060307, end: 20060609

REACTIONS (5)
  - Oncocytoma [Recovered/Resolved]
  - Paradoxical drug reaction [Recovered/Resolved]
  - Parathyroid gland enlargement [Recovered/Resolved]
  - Blood parathyroid hormone increased [Recovered/Resolved]
  - Drug ineffective [Recovered/Resolved]

NARRATIVE: CASE EVENT DATE: 20060915
